FAERS Safety Report 22848225 (Version 8)
Quarter: 2023Q4

REPORT INFORMATION
  Report Type: Other
  Country: JP (occurrence: JP)
  Receive Date: 20230822
  Receipt Date: 20231212
  Transmission Date: 20240110
  Serious: Yes (Death, Hospitalization, Other)
  Sender: FDA-Public Use
  Company Number: JP-ASTELLAS-2023JP009674

PATIENT
  Age: 52 Year
  Sex: Female
  Weight: 65 kg

DRUGS (21)
  1. PADCEV [Suspect]
     Active Substance: ENFORTUMAB VEDOTIN-EJFV
     Indication: Bladder cancer
     Dosage: 86MG(1.25 MG/KG) EACH TIME, ONCE WEEKLY FOR 3 CONSECUTIVE WEEKS, AND DISCONTINUED AT WEEK 4
     Route: 041
     Dates: start: 20230725, end: 20230808
  2. CELECOXIB [Concomitant]
     Active Substance: CELECOXIB
     Indication: Product used for unknown indication
     Dosage: UNK UNK, UNKNOWN FREQ.
     Route: 048
  3. TRAMADOL HYDROCHLORIDE [Concomitant]
     Active Substance: TRAMADOL HYDROCHLORIDE
     Indication: Product used for unknown indication
     Dosage: UNK UNK, UNKNOWN FREQ.
     Route: 048
  4. NEXIUM [Concomitant]
     Active Substance: ESOMEPRAZOLE MAGNESIUM
     Indication: Product used for unknown indication
     Dosage: UNK UNK, UNKNOWN FREQ.
     Route: 048
  5. BETAMETHASONE\CALCIPOTRIENE [Concomitant]
     Active Substance: BETAMETHASONE\CALCIPOTRIENE
     Indication: Product used for unknown indication
     Dosage: UNK UNK, UNKNOWN FREQ.
     Route: 050
  6. CLOBETASOL PROPIONATE [Concomitant]
     Active Substance: CLOBETASOL PROPIONATE
     Indication: Product used for unknown indication
     Dosage: UNK UNK, UNKNOWN FREQ.
     Route: 050
  7. CLOBETASOL PROPIONATE [Concomitant]
     Active Substance: CLOBETASOL PROPIONATE
     Indication: Product used for unknown indication
     Dosage: UNK UNK, UNKNOWN FREQ.
     Route: 050
  8. BETAMETHASONE BUTYRATE PROPIONATE [Concomitant]
     Active Substance: BETAMETHASONE BUTYRATE PROPIONATE
     Indication: Product used for unknown indication
     Dosage: UNK UNK, UNKNOWN FREQ.
     Route: 050
  9. Cadex [Concomitant]
     Indication: Product used for unknown indication
     Dosage: UNK UNK, UNKNOWN FREQ.
     Route: 050
  10. ELIQUIS [Concomitant]
     Active Substance: APIXABAN
     Indication: Pulmonary embolism
     Dosage: UNK UNK, UNKNOWN FREQ.
     Route: 048
     Dates: start: 202212
  11. PEMBROLIZUMAB [Concomitant]
     Active Substance: PEMBROLIZUMAB
     Indication: Product used for unknown indication
     Dosage: UNK UNK, UNKNOWN FREQ.
     Route: 065
     Dates: start: 202301
  12. CEFTRIAXONE SODIUM [Concomitant]
     Active Substance: CEFTRIAXONE SODIUM
     Indication: Product used for unknown indication
     Route: 065
     Dates: start: 20230729, end: 20230808
  13. RINDERON V [Concomitant]
     Active Substance: BETAMETHASONE VALERATE
     Indication: Pruritus
     Dosage: UNK UNK, UNKNOWN FREQ.
     Route: 061
     Dates: start: 20230807
  14. ACETAMINOPHEN [Concomitant]
     Active Substance: ACETAMINOPHEN
     Indication: Pain
     Dosage: UNK UNK, UNKNOWN FREQ.
     Route: 065
     Dates: start: 20230811
  15. NAUZELIN [Concomitant]
     Active Substance: DOMPERIDONE
     Indication: Product used for unknown indication
     Dosage: UNK UNK, UNKNOWN FREQ.
     Route: 065
     Dates: start: 20230812
  16. ALLOID G [Concomitant]
     Active Substance: SODIUM ALGINATE
     Indication: Product used for unknown indication
     Dosage: UNK UNK, UNKNOWN FREQ.
     Route: 065
     Dates: start: 20230812
  17. CEFEPIME HYDROCHLORIDE [Concomitant]
     Active Substance: CEFEPIME HYDROCHLORIDE
     Indication: Febrile neutropenia
     Dosage: 0.5 G, TWICE DAILY
     Route: 065
     Dates: start: 20230813
  18. LENOGRASTIM [Concomitant]
     Active Substance: LENOGRASTIM
     Indication: Febrile neutropenia
     Dosage: UNK UNK, UNKNOWN FREQ.
     Route: 065
     Dates: start: 20230813
  19. THROMBOMODULIN ALFA [Concomitant]
     Active Substance: THROMBOMODULIN ALFA
     Indication: Disseminated intravascular coagulation
     Route: 065
     Dates: start: 20230814
  20. FILGRASTIM [Concomitant]
     Active Substance: FILGRASTIM
     Indication: Febrile neutropenia
     Route: 065
     Dates: start: 20230814
  21. MEROPENEM [Concomitant]
     Active Substance: MEROPENEM
     Indication: Disseminated intravascular coagulation
     Route: 065
     Dates: start: 20230814

REACTIONS (5)
  - Disseminated intravascular coagulation [Fatal]
  - Blood pressure decreased [Unknown]
  - Drug eruption [Fatal]
  - Febrile neutropenia [Unknown]
  - Skin disorder [Fatal]

NARRATIVE: CASE EVENT DATE: 20230810
